FAERS Safety Report 4334237-7 (Version None)
Quarter: 2004Q2

REPORT INFORMATION
  Report Type: 
  Country: None (occurrence: None)
  Receive Date: 20040402
  Receipt Date: 20040322
  Transmission Date: 20050107
  Serious: Yes (Life-Threatening, Disabling)
  Sender: FDA-Public Use
  Company Number: 2004AP01447

PATIENT
  Age: 75 Year
  Sex: Male
  Weight: 53 kg

DRUGS (7)
  1. DIPRIVAN [Suspect]
     Indication: GENERAL ANAESTHESIA
     Dates: start: 20040216, end: 20040216
  2. GASTER [Concomitant]
  3. ANAPEINE INJECTION [Concomitant]
  4. ST [Concomitant]
  5. MUSCULAX [Concomitant]
  6. MORPHINE [Concomitant]
  7. PENTCILLIN [Concomitant]

REACTIONS (5)
  - HAEMODIALYSIS [None]
  - HEPATIC FUNCTION ABNORMAL [None]
  - HYPOXIA [None]
  - LOW CARDIAC OUTPUT SYNDROME [None]
  - RENAL FAILURE ACUTE [None]
